FAERS Safety Report 20378861 (Version 1)
Quarter: 2022Q1

REPORT INFORMATION
  Report Type: Spontaneous
  Country: JP (occurrence: JP)
  Receive Date: 20220126
  Receipt Date: 20220126
  Transmission Date: 20220424
  Serious: Yes (Hospitalization, Other)
  Sender: FDA-Public Use
  Company Number: JP-PFIZER INC-202200113860

PATIENT
  Age: 81 Year
  Sex: Male
  Weight: 62.2 kg

DRUGS (5)
  1. MEROPENEM [Suspect]
     Active Substance: MEROPENEM
     Dosage: 1 G, TWICE A DAY
     Dates: start: 20210619
  2. SOLU-CORTEF [Suspect]
     Active Substance: HYDROCORTISONE SODIUM SUCCINATE
     Dosage: 200 MG, DAILY
     Dates: start: 20210619, end: 20210623
  3. ELOBIXIBAT [Concomitant]
     Active Substance: ELOBIXIBAT
     Dosage: 1 DF (1 TABLET PER TIME BEFORE BREAKFAST)
  4. CORTRIL [Concomitant]
     Active Substance: HYDROCORTISONE
     Dosage: 1.5 DF (1.5 TABLETS PER TIME AFTER BREAKFAST AND LUNCH)
  5. NEXIUM I.V. [Concomitant]
     Active Substance: ESOMEPRAZOLE SODIUM
     Dosage: 1 DF (1 CAPSULE PER TIME AFTER BREAKFAST)

REACTIONS (3)
  - Pericarditis [Recovered/Resolved]
  - Pericardial effusion [Recovered/Resolved]
  - Blood creatine phosphokinase decreased [Unknown]

NARRATIVE: CASE EVENT DATE: 20210619
